FAERS Safety Report 24055505 (Version 1)
Quarter: 2024Q3

REPORT INFORMATION
  Report Type: Spontaneous
  Country: US (occurrence: None)
  Receive Date: 20240703
  Receipt Date: 20240703
  Transmission Date: 20241016
  Serious: Yes (Other)
  Sender: Public
  Company Number: None

PATIENT
  Age: 82 Year
  Sex: Male
  Weight: 80.5 kg

DRUGS (1)
  1. PERFLUTREN [Suspect]
     Active Substance: PERFLUTREN
     Route: 040
     Dates: start: 20240703, end: 20240703

REACTIONS (1)
  - Muscle spasms [None]

NARRATIVE: CASE EVENT DATE: 20240703
